FAERS Safety Report 21765370 (Version 1)
Quarter: 2022Q4

REPORT INFORMATION
  Report Type: Spontaneous
  Country: US (occurrence: US)
  Receive Date: 20221222
  Receipt Date: 20221222
  Transmission Date: 20230113
  Serious: No
  Sender: FDA-Public Use
  Company Number: US-002147023-NVSC2022US295248

PATIENT
  Sex: Female

DRUGS (1)
  1. LEQVIO [Suspect]
     Active Substance: INCLISIRAN SODIUM
     Indication: Arteriosclerosis
     Dosage: UNK (284 MG/KG, ONE SINGLE DOSE)
     Route: 058
     Dates: start: 2022

REACTIONS (2)
  - Urinary tract infection [Unknown]
  - Myalgia [Unknown]
